FAERS Safety Report 4437556-9 (Version None)
Quarter: 2004Q3

REPORT INFORMATION
  Report Type: 
  Country: None (occurrence: None)
  Receive Date: 20040830
  Receipt Date: 20040830
  Transmission Date: 20050211
  Serious: Yes (Hospitalization)
  Sender: FDA-Public Use
  Company Number: None

PATIENT
  Age: 17 Year
  Sex: Female
  Weight: 73.4827 kg

DRUGS (4)
  1. ADDERALL XR 5 [Suspect]
     Indication: IMPULSE-CONTROL DISORDER
     Dosage: 5 MG DAILY ORAL
     Route: 048
     Dates: start: 20040701, end: 20040813
  2. ADDERALL XR 5 [Suspect]
     Indication: PSYCHOMOTOR HYPERACTIVITY
     Dosage: 5 MG DAILY ORAL
     Route: 048
     Dates: start: 20040701, end: 20040813
  3. DEXEDRINE [Suspect]
     Indication: IMPULSE-CONTROL DISORDER
     Dosage: 5 MG DAILY ORAL
     Route: 048
     Dates: start: 20040805, end: 20040813
  4. DEXEDRINE [Suspect]
     Indication: PSYCHOMOTOR HYPERACTIVITY
     Dosage: 5 MG DAILY ORAL
     Route: 048
     Dates: start: 20040805, end: 20040813

REACTIONS (12)
  - AMNESIA [None]
  - DELUSION [None]
  - DISORIENTATION [None]
  - EATING DISORDER [None]
  - INSOMNIA [None]
  - MANIA [None]
  - MEMORY IMPAIRMENT [None]
  - MENTAL DISORDER [None]
  - PSYCHOMOTOR HYPERACTIVITY [None]
  - REPETITIVE SPEECH [None]
  - SLEEP DISORDER [None]
  - SPEECH DISORDER [None]
